FAERS Safety Report 23604704 (Version 2)
Quarter: 2024Q2

REPORT INFORMATION
  Report Type: Spontaneous
  Country: BR (occurrence: None)
  Receive Date: 20240307
  Receipt Date: 20240418
  Transmission Date: 20240715
  Serious: Yes (Other)
  Sender: FDA-Public Use
  Company Number: 2024A052403

PATIENT
  Age: 38 Year
  Sex: Male

DRUGS (3)
  1. IMFINZI [Suspect]
     Active Substance: DURVALUMAB
     Indication: Lung adenocarcinoma
     Dates: end: 20220623
  2. CARBOPLATIN [Concomitant]
     Active Substance: CARBOPLATIN
  3. PACLITAXEL [Concomitant]
     Active Substance: PACLITAXEL

REACTIONS (4)
  - Immunotoxicity [Unknown]
  - Hypophysitis [Unknown]
  - Hypothyroidism [Unknown]
  - Fatigue [Unknown]
